FAERS Safety Report 23616859 (Version 5)
Quarter: 2024Q2

REPORT INFORMATION
  Report Type: Report from Study
  Country: US (occurrence: US)
  Receive Date: 20240311
  Receipt Date: 20240628
  Transmission Date: 20240716
  Serious: Yes (Hospitalization, Other)
  Sender: FDA-Public Use
  Company Number: US-INSMED, INC.-2023-01895-US

PATIENT
  Age: 69 Year
  Sex: Male

DRUGS (4)
  1. ARIKAYCE [Suspect]
     Active Substance: AMIKACIN
     Indication: Mycobacterium avium complex infection
     Dosage: 590 MILLIGRAM, QD
     Route: 055
     Dates: start: 20230511, end: 2024
  2. ARIKAYCE [Suspect]
     Active Substance: AMIKACIN
     Dosage: 590 MILLIGRAM, QD
     Route: 055
     Dates: start: 2024
  3. PREDNISONE [Concomitant]
     Active Substance: PREDNISONE
     Indication: Product used for unknown indication
     Dosage: 5 MILLIGRAM, UNK
     Route: 065
  4. ITRACONAZOLE [Concomitant]
     Active Substance: ITRACONAZOLE
     Indication: Product used for unknown indication
     Dosage: 5 MILLIGRAM, UNK
     Route: 065

REACTIONS (17)
  - Medical procedure [Unknown]
  - Hospitalisation [Unknown]
  - Transfusion [Unknown]
  - Chronic obstructive pulmonary disease [Not Recovered/Not Resolved]
  - Cardiac disorder [Unknown]
  - Productive cough [Recovering/Resolving]
  - Adverse drug reaction [Unknown]
  - Tinnitus [Recovered/Resolved]
  - Malaise [Unknown]
  - Therapy interrupted [Unknown]
  - Off label use [Unknown]
  - Product dose omission issue [Unknown]
  - Intentional dose omission [Unknown]
  - Drug ineffective [Unknown]
  - Wrong technique in product usage process [Unknown]
  - Drug dose omission by device [Unknown]
  - Device issue [Unknown]

NARRATIVE: CASE EVENT DATE: 20230501
